FAERS Safety Report 6306130-1 (Version None)
Quarter: 2009Q3

REPORT INFORMATION
  Report Type: 
  Country: None (occurrence: None)
  Receive Date: 20090810
  Receipt Date: 20090801
  Transmission Date: 20100115
  Serious: Yes (Other)
  Sender: FDA-Public Use
  Company Number: CHPA2009US16110

PATIENT
  Age: 82 Year
  Sex: Male
  Weight: 61.2 kg

DRUGS (3)
  1. SLOW FE IRON TABLETS          (FERROUS SULFATE) TABLET [Suspect]
     Indication: MINERAL SUPPLEMENTATION
     Dosage: 160 MG, QD, ORAL
     Route: 048
     Dates: start: 20090601, end: 20090802
  2. AVAPRO [Concomitant]
  3. FELODIPINE [Concomitant]

REACTIONS (2)
  - CONDITION AGGRAVATED [None]
  - HYPERTENSION [None]
